FAERS Safety Report 6646760-0 (Version None)
Quarter: 2010Q1

REPORT INFORMATION
  Report Type: 
  Country: None (occurrence: None)
  Receive Date: 20100323
  Receipt Date: 20100315
  Transmission Date: 20100710
  Serious: Yes (Hospitalization)
  Sender: FDA-Public Use
  Company Number: DE-AMGEN-QUU389579

PATIENT
  Age: 70 Year
  Sex: Female

DRUGS (17)
  1. MIMPARA [Suspect]
     Indication: HYPERPARATHYROIDISM SECONDARY
     Route: 048
     Dates: start: 20060101
  2. FENTANYL [Suspect]
     Indication: PAIN
     Route: 062
     Dates: start: 20090601, end: 20090727
  3. DREISAVIT [Concomitant]
     Route: 048
     Dates: start: 20050101, end: 20090726
  4. FOSRENOL [Concomitant]
     Route: 048
     Dates: start: 20070601
  5. DIGITOXIN INJ [Concomitant]
     Route: 048
     Dates: start: 20070601
  6. MCP-RATIOPHARM [Concomitant]
     Route: 048
     Dates: start: 20050101, end: 20090731
  7. ACETYLSALICYLIC ACID [Concomitant]
     Dates: start: 20050101
  8. METAMIZOLE [Concomitant]
     Route: 048
     Dates: start: 20090601
  9. BENSERAZIDE HYDROCHLORIDE/LEVODOPA [Concomitant]
     Route: 048
     Dates: start: 20060101
  10. CARVEDILOL [Concomitant]
     Route: 048
     Dates: start: 20060101
  11. CANDESARTAN CILEXETIL [Concomitant]
     Route: 048
     Dates: start: 20070101
  12. OMEPRAZOLE [Concomitant]
     Route: 048
     Dates: start: 20050101
  13. NOVONORM [Concomitant]
     Route: 048
     Dates: start: 20070101
  14. SIMVASTATIN [Concomitant]
     Route: 048
     Dates: start: 20050101
  15. ACTONEL [Concomitant]
     Route: 048
     Dates: start: 20080101
  16. REPAGLINIDE [Concomitant]
  17. CANDESARTAN [Concomitant]

REACTIONS (2)
  - SOMNOLENCE [None]
  - TRANSAMINASES INCREASED [None]
